FAERS Safety Report 10141523 (Version 1)
Quarter: 2014Q2

REPORT INFORMATION
  Report Type: Spontaneous
  Country: BR (occurrence: BR)
  Receive Date: 20140429
  Receipt Date: 20140429
  Transmission Date: 20141212
  Serious: Yes (Other)
  Sender: FDA-Public Use
  Company Number: BR-GLAXOSMITHKLINE-A1069334A

PATIENT
  Sex: Female
  Weight: 75 kg

DRUGS (5)
  1. SERETIDE [Suspect]
     Indication: ASTHMA
     Dosage: 2PUFF TWICE PER DAY
     Route: 055
     Dates: start: 2004
  2. LOSARTAN POTASSIUM [Concomitant]
  3. OMEPRAZOLE [Concomitant]
  4. HYDROCHLOROTHIAZIDE [Concomitant]
  5. BUDESONIDE [Concomitant]

REACTIONS (3)
  - Acne [Not Recovered/Not Resolved]
  - Dermal cyst [Not Recovered/Not Resolved]
  - Sebaceous cyst excision [Unknown]
